FAERS Safety Report 21839711 (Version 4)
Quarter: 2023Q2

REPORT INFORMATION
  Report Type: Report from Study
  Country: US (occurrence: US)
  Receive Date: 20230109
  Receipt Date: 20230630
  Transmission Date: 20230722
  Serious: Yes (Other)
  Sender: FDA-Public Use
  Company Number: US-ABBVIE-22K-163-4426322-00

PATIENT
  Sex: Male
  Weight: 72.574 kg

DRUGS (5)
  1. HUMIRA [Suspect]
     Active Substance: ADALIMUMAB
     Indication: Rheumatoid arthritis
     Dosage: START DATE TEXT: MORE THAN FIVE YEARS, STRENGTH: 40 MG, CITRATE FREE
     Route: 058
     Dates: end: 202212
  2. HUMIRA [Suspect]
     Active Substance: ADALIMUMAB
     Indication: Ankylosing spondylitis
     Dosage: STRENGTH: 40 MG, CITRATE FREE
     Route: 058
     Dates: start: 202212
  3. HUMIRA [Suspect]
     Active Substance: ADALIMUMAB
     Dosage: STRENGTH: 40 MG, CITRATE FREE
     Route: 058
     Dates: start: 20190101
  4. HUMIRA [Suspect]
     Active Substance: ADALIMUMAB
     Dosage: STRENGTH: 40 MG, CITRATE FREE
     Route: 058
     Dates: start: 20190101
  5. INSULIN NOS [Concomitant]
     Active Substance: INSULIN NOS
     Indication: Product used for unknown indication

REACTIONS (13)
  - Hip arthroplasty [Recovering/Resolving]
  - Joint swelling [Unknown]
  - Gait disturbance [Not Recovered/Not Resolved]
  - Intentional product misuse [Recovered/Resolved]
  - Arthralgia [Recovered/Resolved]
  - Arthralgia [Recovering/Resolving]
  - Joint effusion [Recovering/Resolving]
  - Joint swelling [Not Recovered/Not Resolved]
  - Arthritis [Recovering/Resolving]
  - Arthralgia [Not Recovered/Not Resolved]
  - Procedural pain [Unknown]
  - Arthralgia [Unknown]
  - Therapeutic response shortened [Unknown]

NARRATIVE: CASE EVENT DATE: 20220101
